FAERS Safety Report 9288431 (Version 1)
Quarter: 2013Q2

REPORT INFORMATION
  Report Type: Report from Study
  Country: CA (occurrence: CA)
  Receive Date: 20130514
  Receipt Date: 20130514
  Transmission Date: 20140414
  Serious: No
  Sender: FDA-Public Use
  Company Number: CA-OPTIMER PHARMACEUTICALS, INC.-20110028

PATIENT
  Age: 75 Year
  Sex: Male

DRUGS (1)
  1. FIDAXOMICIN [Suspect]
     Indication: DIARRHOEA
     Dosage: 200 MG, BID
     Route: 048
     Dates: start: 20110822, end: 20110831

REACTIONS (1)
  - Diarrhoea [Recovered/Resolved]
